FAERS Safety Report 20191139 (Version 2)
Quarter: 2021Q4

REPORT INFORMATION
  Report Type: Spontaneous
  Country: RU (occurrence: RU)
  Receive Date: 20211216
  Receipt Date: 20211224
  Transmission Date: 20220303
  Serious: Yes (Hospitalization, Other)
  Sender: FDA-Public Use
  Company Number: RU-BRISTOL-MYERS SQUIBB COMPANY-BMS-2021-132767

PATIENT
  Age: 64 Year
  Sex: Female

DRUGS (2)
  1. NIVOLUMAB [Suspect]
     Active Substance: NIVOLUMAB
     Indication: Renal cancer
     Dosage: 480 MILLIGRAM, CYCLE 28 DAYS
     Route: 042
     Dates: start: 202111
  2. KETOPROFEN [Concomitant]
     Active Substance: KETOPROFEN
     Indication: Product used for unknown indication
     Dosage: 1 OR 2- TABLETS PER DAY
     Route: 065

REACTIONS (5)
  - Acute kidney injury [Recovered/Resolved]
  - Hydrothorax [Unknown]
  - Nephritis [Unknown]
  - Hypothyroidism [Unknown]
  - Pulmonary congestion [Unknown]
